FAERS Safety Report 15773481 (Version 1)
Quarter: 2018Q4

REPORT INFORMATION
  Report Type: Report from Study
  Country: None (occurrence: US)
  Receive Date: 20181228
  Receipt Date: 20181228
  Transmission Date: 20190205
  Serious: Yes (Hospitalization, Other)
  Sender: FDA-Public Use
  Company Number: US-ABBVIE-18S-163-2603000-00

PATIENT
  Age: 12 Year
  Sex: Female

DRUGS (1)
  1. LUPRON [Suspect]
     Active Substance: LEUPROLIDE ACETATE
     Indication: PRODUCT USED FOR UNKNOWN INDICATION
     Route: 050

REACTIONS (9)
  - Acanthosis nigricans [Unknown]
  - Dizziness [Unknown]
  - Haemorrhage [Unknown]
  - Menorrhagia [Unknown]
  - Uterine haemorrhage [Unknown]
  - Overweight [Unknown]
  - Body height below normal [Unknown]
  - Menstruation irregular [Unknown]
  - Dysfunctional uterine bleeding [Unknown]

NARRATIVE: CASE EVENT DATE: 20181203
